FAERS Safety Report 10240005 (Version 1)
Quarter: 2014Q2

REPORT INFORMATION
  Report Type: Spontaneous
  Country: GB (occurrence: GB)
  Receive Date: 20140616
  Receipt Date: 20140616
  Transmission Date: 20141212
  Serious: Yes (Hospitalization)
  Sender: FDA-Public Use
  Company Number: GB-MYLANLABS-2014S1013255

PATIENT
  Age: 15 Year
  Sex: Male
  Weight: 37.7 kg

DRUGS (5)
  1. AZATHIOPRINE [Suspect]
     Indication: CROHN^S DISEASE
     Route: 048
  2. ALFACALCIDOL [Concomitant]
  3. INFLIXIMAB [Concomitant]
  4. OMEPRAZOLE [Concomitant]
  5. TESTOSTERONE [Concomitant]

REACTIONS (2)
  - Photosensitivity reaction [Recovered/Resolved]
  - Dehydration [Recovered/Resolved]
